FAERS Safety Report 8357787-5 (Version None)
Quarter: 2012Q2

REPORT INFORMATION
  Report Type: 
  Country: None (occurrence: None)
  Receive Date: 20120514
  Receipt Date: 20120504
  Transmission Date: 20120825
  Serious: Yes (Hospitalization)
  Sender: FDA-Public Use
  Company Number: GB-BRISTOL-MYERS SQUIBB COMPANY-16442709

PATIENT
  Age: 62 Year
  Sex: Female
  Weight: 63 kg

DRUGS (8)
  1. TEMAZEPAM [Concomitant]
     Dates: start: 20120330
  2. NYSTATIN [Concomitant]
     Dates: start: 20120331
  3. MORPHINE SULFATE [Concomitant]
     Route: 048
  4. PRILOSEC [Concomitant]
     Route: 048
  5. CARBOPLATIN [Suspect]
     Indication: SMALL CELL LUNG CANCER STAGE UNSPECIFIED
     Dosage: RECENT: 20JAN12
     Dates: start: 20110923
  6. DEMECLOCYCLINE HCL [Concomitant]
     Route: 048
     Dates: start: 20120214
  7. ETOPOSIDE [Suspect]
     Indication: SMALL CELL LUNG CANCER STAGE UNSPECIFIED
     Dosage: RECENT INF: 20JAN12
     Dates: start: 20110923
  8. IPILIMUMAB [Suspect]
     Indication: SMALL CELL LUNG CANCER STAGE UNSPECIFIED
     Dosage: THERAPY ON 30DEC12,RECENT INF: 20JAN12.
     Dates: start: 20111111

REACTIONS (6)
  - CONFUSIONAL STATE [None]
  - VOMITING [None]
  - INAPPROPRIATE ANTIDIURETIC HORMONE SECRETION [None]
  - DIARRHOEA [None]
  - ANXIETY [None]
  - HYPOPHYSITIS [None]
